FAERS Safety Report 7673065-1 (Version None)
Quarter: 2011Q3

REPORT INFORMATION
  Report Type: 
  Country: None (occurrence: None)
  Receive Date: 20110810
  Receipt Date: 20110803
  Transmission Date: 20111222
  Serious: Yes (Hospitalization, Other)
  Sender: FDA-Public Use
  Company Number: NO-AMGEN-NORSP2011039564

PATIENT
  Age: 45 Year
  Sex: Female

DRUGS (5)
  1. FOLIC ACID [Concomitant]
     Dosage: 1 MG 6 DAYS A WEEK
  2. METHOTREXATE SODIUM [Concomitant]
     Indication: RHEUMATOID ARTHRITIS
     Dosage: 17.5 MG, WEEKLY
  3. ENBREL [Suspect]
     Indication: RHEUMATOID ARTHRITIS
     Dosage: UNK
     Dates: start: 20010101, end: 20110201
  4. ENBREL [Suspect]
     Dosage: UNK
     Dates: start: 20110624
  5. PREDNISOLONE [Concomitant]
     Dosage: 5 MG DAILY, AS NEEDED

REACTIONS (2)
  - RHEUMATOID ARTHRITIS [None]
  - PANCREATITIS [None]
